FAERS Safety Report 4932033-0 (Version None)
Quarter: 2006Q1

REPORT INFORMATION
  Report Type: 
  Country: None (occurrence: None)
  Receive Date: 20060303
  Receipt Date: 20050627
  Transmission Date: 20060701
  Serious: Yes (Hospitalization)
  Sender: FDA-Public Use
  Company Number: ESWYE777227JUN05

PATIENT
  Age: 57 Year
  Sex: Female

DRUGS (2)
  1. ENBREL [Suspect]
     Indication: PSORIASIS
     Route: 058
     Dates: start: 20050601, end: 20050616
  2. ANTIHYPERTENSIVE MEDICATION NOS [Concomitant]

REACTIONS (2)
  - DERMATITIS EXFOLIATIVE [None]
  - ERYTHRODERMIC PSORIASIS [None]
